FAERS Safety Report 16527652 (Version 1)
Quarter: 2019Q3

REPORT INFORMATION
  Report Type: Report from Study
  Country: US (occurrence: US)
  Receive Date: 20190703
  Receipt Date: 20190703
  Transmission Date: 20191004
  Serious: Yes (Death, Other)
  Sender: FDA-Public Use
  Company Number: US-JNJFOC-20190629789

PATIENT
  Sex: Female

DRUGS (2)
  1. CARBOPLATIN. [Concomitant]
     Active Substance: CARBOPLATIN
     Indication: OVARIAN EPITHELIAL CANCER RECURRENT
  2. DOXIL [Suspect]
     Active Substance: DOXORUBICIN HYDROCHLORIDE
     Indication: OVARIAN EPITHELIAL CANCER RECURRENT
     Route: 042

REACTIONS (5)
  - Stomatitis [Unknown]
  - Palmar-plantar erythrodysaesthesia syndrome [Unknown]
  - Ovarian epithelial cancer [Fatal]
  - Mucosal inflammation [Unknown]
  - Bone marrow failure [Unknown]
